FAERS Safety Report 7329544-X (Version None)
Quarter: 2011Q1

REPORT INFORMATION
  Report Type: 
  Country: None (occurrence: None)
  Receive Date: 20110303
  Receipt Date: 20110218
  Transmission Date: 20110831
  Serious: Yes (Hospitalization)
  Sender: FDA-Public Use
  Company Number: JP-BAYER-2011-013774

PATIENT
  Age: 61 Year
  Sex: Male
  Weight: 59 kg

DRUGS (18)
  1. ROCURONIUM BROMIDE [Concomitant]
     Dosage: 30 MG ONCE
     Route: 042
  2. HEPARIN SODIUM [Suspect]
     Dosage: 15 IU, UNK
     Route: 042
  3. OXYGEN [Concomitant]
     Indication: MAINTENANCE OF ANAESTHESIA
     Dosage: 1L/MIN
     Route: 055
  4. WARFARIN POTASSIUM [Suspect]
     Dosage: DAILY DOSE 1.4 MG
     Route: 048
  5. WARFARIN POTASSIUM [Suspect]
     Dosage: DAILY DOSE 1.4 MG
     Route: 048
  6. CEFMETAZOLE SODIUM [Concomitant]
     Dosage: 1 G, BID
     Route: 042
  7. REMIFENTANIL HYDROCHLORIDE [Concomitant]
     Indication: ANAESTHESIA PROCEDURE
     Dosage: 0.5 ?G/KG/H FOR 5 MINUTES
     Route: 042
  8. DEXAMETHASONE [Concomitant]
     Indication: SWELLING
     Dosage: DAILY DOSE 4 MG
     Route: 042
  9. RED BLOOD CELLS, LEUCOCYTE DEPLETED [Concomitant]
     Indication: HAEMOGLOBIN DECREASED
     Dosage: DAILY DOSE 4 U
     Route: 042
  10. ROCURONIUM BROMIDE [Concomitant]
     Indication: HYPOTONIA
     Dosage: DAILY DOSE 5 MG
     Route: 042
  11. HEPARIN SODIUM [Suspect]
     Dosage: DAILY DOSE 12000 U
     Route: 042
  12. HEPARIN SODIUM [Suspect]
     Dosage: DAILY DOSE 9000 U
     Route: 042
  13. REMIFENTANIL HYDROCHLORIDE [Concomitant]
     Dosage: 1.2%, PRN
     Route: 042
  14. SEVOFLURANE [Concomitant]
     Indication: MAINTENANCE OF ANAESTHESIA
     Dosage: DAILY DOSE 1.2 %
     Route: 055
  15. ASPIRIN [Suspect]
     Dosage: DAILY DOSE 100 MG
     Route: 048
  16. BUCOLOME [Suspect]
     Dosage: DAILY DOSE 300 MG
     Route: 048
  17. PROPOFOL [Concomitant]
     Indication: ANAESTHESIA PROCEDURE
     Dosage: DAILY DOSE 30 MG
     Route: 042
  18. MENATETRENONE [Concomitant]
     Indication: ANTICOAGULANT THERAPY
     Dosage: DAILY DOSE 20 MG
     Route: 065

REACTIONS (1)
  - TONGUE HAEMATOMA [None]
